FAERS Safety Report 9495285 (Version 1)
Quarter: 2013Q3

REPORT INFORMATION
  Report Type: Report from Study
  Country: AU (occurrence: AU)
  Receive Date: 20130903
  Receipt Date: 20130903
  Transmission Date: 20140515
  Serious: Yes (Death)
  Sender: FDA-Public Use
  Company Number: AU-B.I. PHARMACEUTICALS,INC./RIDGEFIELD-2013-BI-27156GD

PATIENT
  Age: 53 Year
  Sex: Female

DRUGS (5)
  1. ALTEPLASE [Suspect]
     Indication: THROMBOSIS IN DEVICE
     Dosage: 15-MG ALTEPLASE REPEATED THREE TIMES WITHIN 60 MIN AND AN ADDITIONAL DOSE OF 15-MG ALTEPLASE
     Route: 042
  2. DIPYRIDAMOLE [Suspect]
     Indication: ANTIPLATELET THERAPY
  3. ASPIRIN [Suspect]
     Indication: ANTIPLATELET THERAPY
     Dosage: 100 MG
  4. CLOPIDOGREL [Suspect]
     Indication: ANTIPLATELET THERAPY
     Dosage: 75 MG
  5. WARFARIN [Suspect]
     Indication: ANTICOAGULANT THERAPY
     Route: 048

REACTIONS (1)
  - Multi-organ failure [Fatal]
